FAERS Safety Report 5658183-1 (Version None)
Quarter: 2008Q1

REPORT INFORMATION
  Report Type: 
  Country: None (occurrence: None)
  Receive Date: 20080306
  Receipt Date: 20080228
  Transmission Date: 20080703
  Serious: Yes (Disabling, Other)
  Sender: FDA-Public Use
  Company Number: US-GDP-08403609

PATIENT

DRUGS (1)
  1. PLIAGLIS LIDOCAINE , TETRACAINE CREAM 7%/7% [Suspect]
     Indication: LASER THERAPY
     Dosage: (TOPICAL)
     Route: 061

REACTIONS (2)
  - CONJUNCTIVITIS [None]
  - INJURY CORNEAL [None]
